FAERS Safety Report 5678292-0 (Version None)
Quarter: 2008Q1

REPORT INFORMATION
  Report Type: 
  Country: None (occurrence: None)
  Receive Date: 20080320
  Receipt Date: 20080311
  Transmission Date: 20080703
  Serious: Yes (Other)
  Sender: FDA-Public Use
  Company Number: A0705675A

PATIENT
  Age: 59 Year
  Sex: Male

DRUGS (6)
  1. UREA PEROXIDE [Suspect]
     Indication: CERUMEN IMPACTION
  2. OLMESARTAN MEDOXOMIL [Concomitant]
  3. SIMVASTATIN [Concomitant]
  4. ALPRAZOLAM [Concomitant]
  5. OXYCODONE HCL [Concomitant]
  6. ASPIRIN [Concomitant]

REACTIONS (8)
  - DEAFNESS UNILATERAL [None]
  - DEVICE BREAKAGE [None]
  - EAR CANAL INJURY [None]
  - HEADACHE [None]
  - LACERATION [None]
  - OTITIS EXTERNA [None]
  - SCAB [None]
  - TYMPANIC MEMBRANE PERFORATION [None]
